FAERS Safety Report 22179264 (Version 1)
Quarter: 2023Q2

REPORT INFORMATION
  Report Type: Spontaneous
  Country: JP (occurrence: JP)
  Receive Date: 20230406
  Receipt Date: 20230406
  Transmission Date: 20230721
  Serious: Yes (Hospitalization)
  Sender: FDA-Public Use
  Company Number: JP-BAYER-2021A229935

PATIENT
  Age: 75 Year
  Sex: Female

DRUGS (12)
  1. XARELTO [Suspect]
     Active Substance: RIVAROXABAN
     Indication: Atrial fibrillation
     Dosage: 10MG
     Route: 048
  2. BISOPROLOL FUMARATE [Suspect]
     Active Substance: BISOPROLOL FUMARATE
     Indication: Product used for unknown indication
     Dosage: 0.625MG
     Route: 065
  3. DIGOXIN [Suspect]
     Active Substance: DIGOXIN
     Indication: Product used for unknown indication
     Dosage: 0.125MG
     Route: 065
  4. AZOSEMIDE [Concomitant]
     Active Substance: AZOSEMIDE
     Dosage: 45MG
  5. AMARYL [Concomitant]
     Active Substance: GLIMEPIRIDE
     Dosage: 1MG
  6. LANTUS [Concomitant]
     Active Substance: INSULIN GLARGINE
     Dosage: 10UNIT
  7. PIMOBENDAN [Concomitant]
     Active Substance: PIMOBENDAN
     Dosage: 2.5MG
  8. SODIUM FERROUS CITRATE [Concomitant]
     Active Substance: SODIUM FERROUS CITRATE
     Dosage: 50MG
  9. AMLODIPINE BESYLATE\AZILSARTAN [Concomitant]
     Active Substance: AMLODIPINE BESYLATE\AZILSARTAN
     Dosage: 10MG
  10. LIPITOR [Concomitant]
     Active Substance: ATORVASTATIN CALCIUM
     Dosage: 10MG
  11. NORVASC [Concomitant]
     Active Substance: AMLODIPINE BESYLATE
     Dosage: 5MG
  12. LASIX [Concomitant]
     Active Substance: FUROSEMIDE
     Dosage: 20MG

REACTIONS (2)
  - Oedema [Recovering/Resolving]
  - Dyspnoea exertional [Recovering/Resolving]
